FAERS Safety Report 5514862-8 (Version None)
Quarter: 2007Q4

REPORT INFORMATION
  Report Type: 
  Country: None (occurrence: None)
  Receive Date: 20071109
  Receipt Date: 20071024
  Transmission Date: 20080405
  Serious: No
  Sender: FDA-Public Use
  Company Number: 8027800

PATIENT
  Age: 24 Month
  Sex: Female

DRUGS (4)
  1. KEPPRA [Suspect]
     Indication: CEREBRAL PALSY
  2. KEPPRA [Suspect]
     Indication: CONVULSION
  3. KEPPRA [Suspect]
     Indication: CEREBRAL PALSY
  4. KEPPRA [Suspect]
     Indication: CONVULSION

REACTIONS (1)
  - ACCIDENTAL OVERDOSE [None]
